FAERS Safety Report 8759601 (Version 1)
Quarter: 2012Q4

REPORT INFORMATION
  Report Type: 
  Country: US (occurrence: US)
  Receive Date: 20120829
  Receipt Date: 20120829
  Transmission Date: 20130627
  Serious: No
  Sender: FDA-Public Use
  Company Number: US-JNJFOC-20120801913

PATIENT
  Age: 21 Year
  Sex: Male

DRUGS (1)
  1. INVEGA SUSTENNA [Suspect]
     Indication: PRODUCT USED FOR UNKNOWN INDICATION
     Route: 030

REACTIONS (5)
  - Device leakage [Unknown]
  - Drug dose omission [Not Recovered/Not Resolved]
  - Accidental exposure to product [Unknown]
  - Syringe issue [Unknown]
  - Wrong technique in drug usage process [Unknown]
